FAERS Safety Report 17392938 (Version 1)
Quarter: 2020Q1

REPORT INFORMATION
  Report Type: Spontaneous
  Country: US (occurrence: US)
  Receive Date: 20200207
  Receipt Date: 20200207
  Transmission Date: 20200409
  Serious: No
  Sender: FDA-Public Use
  Company Number: US-SA-2020SA029674

PATIENT
  Age: 3 Year
  Sex: Male

DRUGS (1)
  1. ALLEGRA D-12 HOUR [Suspect]
     Active Substance: FEXOFENADINE HYDROCHLORIDE\PSEUDOEPHEDRINE HYDROCHLORIDE
     Indication: COUGH
     Dosage: UNK UNK, QD
     Route: 065
     Dates: start: 20200125, end: 20200125

REACTIONS (3)
  - Skin irritation [Unknown]
  - Malaise [Unknown]
  - Vomiting [Unknown]
